FAERS Safety Report 12665794 (Version 4)
Quarter: 2017Q3

REPORT INFORMATION
  Report Type: Report from Study
  Country: CR (occurrence: CR)
  Receive Date: 20160818
  Receipt Date: 20170704
  Transmission Date: 20171127
  Serious: No
  Sender: FDA-Public Use
  Company Number: PHHY2016DO112156

PATIENT
  Age: 86 Year
  Sex: Female

DRUGS (1)
  1. EXELON PATCH [Suspect]
     Active Substance: RIVASTIGMINE
     Indication: PRODUCT USED FOR UNKNOWN INDICATION
     Dosage: 9.5 MG, PATCH 10 (CM2)
     Route: 062

REACTIONS (4)
  - Dementia Alzheimer^s type [Unknown]
  - Anxiety [Unknown]
  - Hypoacusis [Unknown]
  - Malaise [Unknown]
